FAERS Safety Report 20430245 (Version 3)
Quarter: 2024Q2

REPORT INFORMATION
  Report Type: Report from Study
  Country: FR (occurrence: FR)
  Receive Date: 20220204
  Receipt Date: 20240626
  Transmission Date: 20240716
  Serious: Yes (Hospitalization)
  Sender: FDA-Public Use
  Company Number: FR-SERVIER-S20004537

PATIENT

DRUGS (10)
  1. PEGASPARGASE [Suspect]
     Active Substance: PEGASPARGASE
     Indication: Acute lymphocytic leukaemia
     Dosage: 1725 IU, D4
     Route: 042
     Dates: start: 20190829, end: 20191108
  2. VINCRISTINE [Suspect]
     Active Substance: VINCRISTINE
     Indication: Acute lymphocytic leukaemia
     Dosage: 0.9 MG, D1, D15
     Route: 042
     Dates: start: 20190826, end: 20190909
  3. VINCRISTINE [Suspect]
     Active Substance: VINCRISTINE
     Dosage: 0.9 MG, D8
     Route: 065
  4. DOXORUBICIN [Suspect]
     Active Substance: DOXORUBICIN
     Indication: Acute lymphocytic leukaemia
     Dosage: 16.4 MG, D1, D8, D15
     Route: 042
     Dates: start: 20190826, end: 20190909
  5. CYTARABINE [Suspect]
     Active Substance: CYTARABINE
     Indication: Acute lymphocytic leukaemia
     Dosage: 30 MG, D4
     Route: 037
     Dates: start: 20190829, end: 20190829
  6. CYTARABINE [Suspect]
     Active Substance: CYTARABINE
     Dosage: 50 MG, D31, D32
     Route: 042
     Dates: start: 20191007
  7. HYDROCORTISONE [Suspect]
     Active Substance: HYDROCORTISONE\HYDROCORTISONE ACETATE
     Indication: Acute lymphocytic leukaemia
     Dosage: 15 MG, D4
     Route: 037
     Dates: start: 20190829, end: 20190829
  8. METHOTREXATE [Suspect]
     Active Substance: METHOTREXATE
     Indication: Acute lymphocytic leukaemia
     Dosage: 12 MG, ON D4
     Route: 037
     Dates: start: 20190829, end: 20190829
  9. DEXAMETHASONE [Suspect]
     Active Substance: DEXAMETHASONE
     Indication: Acute lymphocytic leukaemia
     Dosage: UNK, D1-D7
     Route: 048
  10. DEXAMETHASONE [Suspect]
     Active Substance: DEXAMETHASONE
     Dosage: 600 MG, D15, D16
     Route: 042
     Dates: start: 20190909, end: 20190910

REACTIONS (2)
  - Parainfluenzae virus infection [Recovered/Resolved]
  - Staphylococcal sepsis [Recovered/Resolved]

NARRATIVE: CASE EVENT DATE: 20190909
